FAERS Safety Report 4719340-1 (Version None)
Quarter: 2005Q3

REPORT INFORMATION
  Report Type: 
  Country: None (occurrence: None)
  Receive Date: 20050721
  Receipt Date: 20050715
  Transmission Date: 20060218
  Serious: Yes (Hospitalization)
  Sender: FDA-Public Use
  Company Number: US-BOEHRINGER INGELHEIM PHARMACEUTICALS, INC.-2005-BP-11884BP

PATIENT
  Sex: Male
  Weight: 77.1 kg

DRUGS (8)
  1. TIPRANAVIR / RITONAVIR CAPSULES [Suspect]
     Indication: HIV INFECTION
     Dosage: TPV/R 1000MG/400MG
     Route: 048
     Dates: start: 20010423
  2. LAMIVUDINE [Concomitant]
     Indication: HIV INFECTION
     Route: 048
     Dates: start: 20010502
  3. STAVUDINE [Concomitant]
     Indication: HIV INFECTION
     Route: 048
     Dates: start: 20010423
  4. HYDROCHLOROTHIAZIDE [Concomitant]
     Indication: BLOOD PRESSURE
     Route: 048
     Dates: start: 20021231
  5. LISINOPRIL [Concomitant]
     Indication: BLOOD PRESSURE
     Route: 048
     Dates: start: 20050614
  6. ATENOLOL [Concomitant]
     Indication: BLOOD PRESSURE
     Route: 048
     Dates: start: 20050205
  7. MECLIZINE [Concomitant]
     Indication: VERTIGO
     Route: 048
     Dates: start: 20050609, end: 20050614
  8. PROMETHAZINE [Concomitant]
     Indication: VERTIGO
     Route: 054
     Dates: start: 20050609, end: 20050620

REACTIONS (1)
  - CONVULSION [None]
